FAERS Safety Report 20069104 (Version 1)
Quarter: 2021Q4

REPORT INFORMATION
  Report Type: Spontaneous
  Country: CA (occurrence: CA)
  Receive Date: 20211115
  Receipt Date: 20211115
  Transmission Date: 20220304
  Serious: Yes (Death)
  Sender: FDA-Public Use
  Company Number: CA-PFIZER INC-202101533820

PATIENT
  Age: 60 Year
  Sex: Male

DRUGS (4)
  1. SERTRALINE HYDROCHLORIDE [Interacting]
     Active Substance: SERTRALINE HYDROCHLORIDE
     Dosage: UNK
  2. NALTREXONE [Interacting]
     Active Substance: NALTREXONE
     Dosage: UNK
  3. OLANZAPINE [Interacting]
     Active Substance: OLANZAPINE
     Dosage: UNK
  4. RISPERIDONE [Interacting]
     Active Substance: RISPERIDONE
     Dosage: UNK

REACTIONS (6)
  - Confusional state [Fatal]
  - Drug interaction [Fatal]
  - Heat stroke [Fatal]
  - Somnolence [Fatal]
  - Speech disorder [Fatal]
  - Temperature regulation disorder [Fatal]
